FAERS Safety Report 6996855-7 (Version None)
Quarter: 2010Q3

REPORT INFORMATION
  Report Type: 
  Country: None (occurrence: None)
  Receive Date: 20100918
  Receipt Date: 20090909
  Transmission Date: 20110219
  Serious: No
  Sender: FDA-Public Use
  Company Number: US-WYE-H10426709

PATIENT
  Sex: Female
  Weight: 77.18 kg

DRUGS (5)
  1. PRISTIQ [Suspect]
     Indication: DEPRESSION
     Route: 048
     Dates: start: 20090301, end: 20090401
  2. PRISTIQ [Suspect]
     Route: 048
     Dates: start: 20090401, end: 20090701
  3. PRISTIQ [Suspect]
     Route: 048
     Dates: start: 20090701
  4. ZOCOR [Concomitant]
  5. MICARDIS [Concomitant]

REACTIONS (4)
  - BLOOD CHOLESTEROL INCREASED [None]
  - BLOOD TRIGLYCERIDES INCREASED [None]
  - CONDITION AGGRAVATED [None]
  - DRUG EFFECT DECREASED [None]
